FAERS Safety Report 9570079 (Version 1)
Quarter: 2013Q3

REPORT INFORMATION
  Report Type: Spontaneous
  Country: US (occurrence: US)
  Receive Date: 20130930
  Receipt Date: 20130930
  Transmission Date: 20140515
  Serious: No
  Sender: FDA-Public Use
  Company Number: US-AMGEN-USASP2013064592

PATIENT
  Age: 52 Year
  Sex: Male

DRUGS (4)
  1. ENBREL [Suspect]
     Indication: RHEUMATOID ARTHRITIS
     Dosage: 50 MG, QWK
     Route: 065
     Dates: start: 201306, end: 20130905
  2. METHOTREXATE [Concomitant]
     Dosage: 2.5 MILLIGRAM TABLETS, 8 TABLETS WEEKLY
     Dates: start: 201201
  3. PLAQUENIL                          /00072602/ [Concomitant]
     Dosage: 2 TABLETS DAILY
     Dates: start: 201201, end: 201308
  4. PREDNISONE [Concomitant]
     Dosage: 1520 MG, QD

REACTIONS (3)
  - Influenza like illness [Not Recovered/Not Resolved]
  - Joint swelling [Not Recovered/Not Resolved]
  - Oedema peripheral [Not Recovered/Not Resolved]
